FAERS Safety Report 25400218 (Version 1)
Quarter: 2025Q2

REPORT INFORMATION
  Report Type: Report from Study
  Country: JP (occurrence: JP)
  Receive Date: 20250605
  Receipt Date: 20250605
  Transmission Date: 20250717
  Serious: Yes (Other)
  Sender: UCB
  Company Number: JP-UCBJ-CD202407850UCBPHAPROD

PATIENT
  Age: 12 Year
  Sex: Female
  Weight: 31.5 kg

DRUGS (14)
  1. FENFLURAMINE HYDROCHLORIDE [Suspect]
     Active Substance: FENFLURAMINE HYDROCHLORIDE
     Indication: Lennox-Gastaut syndrome
     Dosage: 0.05 MILLIGRAM, 2X/DAY (BID)
     Route: 048
     Dates: start: 20240404
  2. FENFLURAMINE HYDROCHLORIDE [Suspect]
     Active Substance: FENFLURAMINE HYDROCHLORIDE
     Dosage: 0.01 MILLIGRAM, 2X/DAY (BID)
     Route: 048
     Dates: start: 20250116
  3. FENFLURAMINE HYDROCHLORIDE [Suspect]
     Active Substance: FENFLURAMINE HYDROCHLORIDE
     Dosage: 0.02 MILLIGRAM, 2X/DAY (BID)
     Route: 048
     Dates: start: 20250205
  4. FENFLURAMINE HYDROCHLORIDE [Suspect]
     Active Substance: FENFLURAMINE HYDROCHLORIDE
     Dosage: 0.026 MILLIGRAM, 2X/DAY (BID)
     Route: 048
     Dates: start: 20250227
  5. FENFLURAMINE HYDROCHLORIDE [Suspect]
     Active Substance: FENFLURAMINE HYDROCHLORIDE
     Dosage: 0.03 MILLIGRAM, 2X/DAY (BID)
     Route: 048
     Dates: start: 20250327
  6. VALPROATE SODIUM [Concomitant]
     Active Substance: VALPROATE SODIUM
     Indication: Lennox-Gastaut syndrome
     Dosage: 1000 MILLIGRAM, ONCE DAILY (QD)
     Route: 048
     Dates: end: 20241002
  7. VALPROATE SODIUM [Concomitant]
     Active Substance: VALPROATE SODIUM
     Dosage: 1100 MILLIGRAM, ONCE DAILY (QD)
     Route: 048
     Dates: start: 20241003, end: 20241106
  8. VALPROATE SODIUM [Concomitant]
     Active Substance: VALPROATE SODIUM
     Dosage: 1200 MILLIGRAM, ONCE DAILY (QD)
     Route: 048
     Dates: start: 20241107
  9. INOVELON [Concomitant]
     Active Substance: RUFINAMIDE
     Indication: Lennox-Gastaut syndrome
     Dosage: 1400 MILLIGRAM, ONCE DAILY (QD)
     Route: 048
  10. SULTHIAME [Concomitant]
     Active Substance: SULTHIAME
     Indication: Lennox-Gastaut syndrome
     Dosage: 50 MILLIGRAM, ONCE DAILY (QD)
     Route: 048
     Dates: start: 20240104, end: 20240117
  11. SULTHIAME [Concomitant]
     Active Substance: SULTHIAME
     Dosage: 100 MILLIGRAM, ONCE DAILY (QD)
     Route: 048
     Dates: start: 20240118, end: 20240129
  12. SULTHIAME [Concomitant]
     Active Substance: SULTHIAME
     Dosage: 50 MILLIGRAM, ONCE DAILY (QD)
     Route: 048
     Dates: start: 20240130, end: 20240205
  13. LEVOCARNITINE FF [Concomitant]
     Indication: Lennox-Gastaut syndrome
     Dosage: 500 MILLIGRAM, ONCE DAILY (QD)
     Route: 048
  14. PYRIDOXAL [Concomitant]
     Active Substance: PYRIDOXAL
     Indication: Lennox-Gastaut syndrome
     Dosage: 40 MILLIGRAM, ONCE DAILY (QD)
     Route: 048
     Dates: start: 20240808, end: 20241002

REACTIONS (5)
  - Seizure [Recovering/Resolving]
  - Epilepsy [Recovering/Resolving]
  - Nasopharyngitis [Recovered/Resolved]
  - Prescribed underdose [Unknown]
  - Off label use [Unknown]

NARRATIVE: CASE EVENT DATE: 20240405
